FAERS Safety Report 11626327 (Version 1)
Quarter: 2015Q4

REPORT INFORMATION
  Report Type: Spontaneous
  Country: US (occurrence: US)
  Receive Date: 20151013
  Receipt Date: 20151013
  Transmission Date: 20160304
  Serious: No
  Sender: FDA-Public Use
  Company Number: US-ROCHE-1524303

PATIENT
  Sex: Female

DRUGS (2)
  1. CATAFLAM [Concomitant]
     Active Substance: DICLOFENAC POTASSIUM
  2. NAPROSYNE [Suspect]
     Active Substance: NAPROXEN
     Indication: MUSCLE SPASMS
     Route: 065

REACTIONS (2)
  - Drug ineffective [Unknown]
  - Nausea [Unknown]
